FAERS Safety Report 18168357 (Version 1)
Quarter: 2020Q3

REPORT INFORMATION
  Report Type: Spontaneous
  Country: US (occurrence: US)
  Receive Date: 20200818
  Receipt Date: 20200818
  Transmission Date: 20201103
  Serious: Yes (Hospitalization)
  Sender: FDA-Public Use
  Company Number: None

PATIENT
  Age: 48 Year
  Sex: Female
  Weight: 83 kg

DRUGS (5)
  1. ATORVASTATIN [Concomitant]
     Active Substance: ATORVASTATIN
     Dates: start: 20141201
  2. GLUCOTROL XL [Concomitant]
     Active Substance: GLIPIZIDE
     Dates: start: 20190730
  3. JANUVIA [Concomitant]
     Active Substance: SITAGLIPTIN PHOSPHATE
     Dates: start: 20180609
  4. JARDIANCE [Suspect]
     Active Substance: EMPAGLIFLOZIN
     Indication: DIABETES MELLITUS
     Route: 048
     Dates: start: 20200120, end: 20200807
  5. METFORMIN [Concomitant]
     Active Substance: METFORMIN HYDROCHLORIDE
     Dates: start: 20050501

REACTIONS (6)
  - Flank pain [None]
  - Fatigue [None]
  - Dysuria [None]
  - Nausea [None]
  - Vomiting [None]
  - Ketonuria [None]

NARRATIVE: CASE EVENT DATE: 20200807
